FAERS Safety Report 5281482-2 (Version None)
Quarter: 2007Q1

REPORT INFORMATION
  Report Type: 
  Country: None (occurrence: None)
  Receive Date: 20070330
  Receipt Date: 20070319
  Transmission Date: 20070707
  Serious: Yes (Death, Hospitalization)
  Sender: FDA-Public Use
  Company Number: CA-JNJFOC-20060204444

PATIENT
  Sex: Female
  Weight: 69 kg

DRUGS (11)
  1. REMICADE [Suspect]
     Route: 042
  2. REMICADE [Suspect]
     Route: 042
  3. REMICADE [Suspect]
     Indication: RHEUMATOID ARTHRITIS
     Route: 042
  4. PREDNISONE [Concomitant]
  5. MTX [Concomitant]
  6. CELEBREX [Concomitant]
  7. FOLIC ACID [Concomitant]
  8. CALCIUM [Concomitant]
  9. VITAMIN D [Concomitant]
  10. EFFEXOR [Concomitant]
  11. ADVAIR DISKUS 100/50 [Concomitant]
     Indication: PULMONARY FIBROSIS
     Route: 055

REACTIONS (3)
  - DEATH [None]
  - DYSPNOEA [None]
  - PULMONARY FIBROSIS [None]
